FAERS Safety Report 6432138-1 (Version None)
Quarter: 2009Q4

REPORT INFORMATION
  Report Type: 
  Country: None (occurrence: None)
  Receive Date: 20091109
  Receipt Date: 20091029
  Transmission Date: 20100525
  Serious: Yes (Other)
  Sender: FDA-Public Use
  Company Number: US-BRISTOL-MYERS SQUIBB COMPANY-14844195

PATIENT
  Age: 26 Year
  Sex: Male

DRUGS (7)
  1. DASATINIB [Suspect]
     Indication: CHRONIC MYELOID LEUKAEMIA
  2. ACYCLOVIR SODIUM [Concomitant]
  3. TRIMETHOPRIM + SULFAMETHOXAZOLE [Concomitant]
  4. VALSARTAN [Concomitant]
  5. DARBEPOETIN ALFA [Concomitant]
  6. PENICILLIN VK [Concomitant]
  7. SUCRALFATE [Concomitant]

REACTIONS (3)
  - GASTROINTESTINAL TOXICITY [None]
  - GRAFT VERSUS HOST DISEASE [None]
  - PLEURAL EFFUSION [None]
